FAERS Safety Report 22211957 (Version 3)
Quarter: 2024Q1

REPORT INFORMATION
  Report Type: Report from Study
  Country: US (occurrence: US)
  Receive Date: 20230414
  Receipt Date: 20240219
  Transmission Date: 20240410
  Serious: Yes (Other)
  Sender: FDA-Public Use
  Company Number: US-ABBVIE-4726723

PATIENT
  Sex: Female

DRUGS (4)
  1. SKYRIZI [Suspect]
     Active Substance: RISANKIZUMAB-RZAA
     Indication: Psoriatic arthropathy
     Dosage: STRENGTH: 150 MG?FIRST ADMIN DATE: 2023
     Route: 058
     Dates: end: 202312
  2. SKYRIZI [Suspect]
     Active Substance: RISANKIZUMAB-RZAA
     Dosage: WEEK 4?STRENGTH: 150 MG
     Route: 058
     Dates: start: 202304, end: 202304
  3. SKYRIZI [Suspect]
     Active Substance: RISANKIZUMAB-RZAA
     Dosage: WEEK 0?STRENGTH: 150 MG
     Route: 058
     Dates: start: 202303, end: 202303
  4. SKYRIZI [Suspect]
     Active Substance: RISANKIZUMAB-RZAA
     Dosage: STRENGTH: 150 MG
     Route: 058
     Dates: start: 20240101

REACTIONS (8)
  - Lung carcinoma cell type unspecified stage I [Unknown]
  - Musculoskeletal stiffness [Recovering/Resolving]
  - Fibromyalgia [Unknown]
  - Psoriasis [Recovering/Resolving]
  - Scar [Unknown]
  - General physical health deterioration [Unknown]
  - Psoriatic arthropathy [Recovering/Resolving]
  - Fatigue [Unknown]

NARRATIVE: CASE EVENT DATE: 20230101
